APPROVED DRUG PRODUCT: SILDENAFIL CITRATE
Active Ingredient: SILDENAFIL CITRATE
Strength: EQ 10MG BASE/ML
Dosage Form/Route: FOR SUSPENSION;ORAL
Application: A215708 | Product #001 | TE Code: AB
Applicant: ZYDUS LIFESCIENCES GLOBAL FZE
Approved: Sep 29, 2022 | RLD: No | RS: No | Type: RX